FAERS Safety Report 18952283 (Version 2)
Quarter: 2021Q1

REPORT INFORMATION
  Report Type: Other
  Country: DE (occurrence: DE)
  Receive Date: 20210301
  Receipt Date: 20210303
  Transmission Date: 20210420
  Serious: Yes (Other)
  Sender: FDA-Public Use
  Company Number: DE-ROCHE-2771323

PATIENT
  Sex: Female

DRUGS (13)
  1. FENISTIL [Concomitant]
     Active Substance: DIMETHINDENE
     Dosage: TREATMENT DATE: 13/AUG/2018, /AUG/2020 AND 08/FEB/2021
     Route: 042
     Dates: start: 20180730
  2. OCRELIZUMAB. [Suspect]
     Active Substance: OCRELIZUMAB
     Route: 042
     Dates: start: 20180813
  3. DEXAMETHASON [Suspect]
     Active Substance: DEXAMETHASONE
     Indication: PRIMARY PROGRESSIVE MULTIPLE SCLEROSIS
     Route: 042
     Dates: start: 20180730
  4. DEXAMETHASON [Suspect]
     Active Substance: DEXAMETHASONE
     Route: 042
     Dates: start: 20180813
  5. METHYLPREDNISOLONE. [Concomitant]
     Active Substance: METHYLPREDNISOLONE
  6. MYOPRIDIN [Concomitant]
  7. FAMPYRA [Concomitant]
     Active Substance: DALFAMPRIDINE
  8. OCRELIZUMAB. [Suspect]
     Active Substance: OCRELIZUMAB
     Indication: PRIMARY PROGRESSIVE MULTIPLE SCLEROSIS
     Route: 042
     Dates: start: 20180730
  9. OCRELIZUMAB. [Suspect]
     Active Substance: OCRELIZUMAB
     Route: 042
     Dates: start: 20210208
  10. DEXAMETHASON [Suspect]
     Active Substance: DEXAMETHASONE
     Route: 042
     Dates: start: 202008
  11. DEXAMETHASON [Suspect]
     Active Substance: DEXAMETHASONE
     Route: 042
     Dates: start: 20210208
  12. CETIXIN [Concomitant]
  13. OCRELIZUMAB. [Suspect]
     Active Substance: OCRELIZUMAB
     Route: 042
     Dates: start: 202008

REACTIONS (22)
  - Multiple sclerosis [Unknown]
  - Product prescribing error [Unknown]
  - Paraesthesia [Not Recovered/Not Resolved]
  - Sleep disorder [Recovered/Resolved]
  - Nasopharyngitis [Not Recovered/Not Resolved]
  - Secretion discharge [Recovered/Resolved]
  - Disturbance in attention [Not Recovered/Not Resolved]
  - Heart rate increased [Recovered/Resolved]
  - Palpitations [Not Recovered/Not Resolved]
  - Tremor [Not Recovered/Not Resolved]
  - Visual impairment [Not Recovered/Not Resolved]
  - Erythema [Recovered/Resolved]
  - Abdominal discomfort [Not Recovered/Not Resolved]
  - Myalgia [Not Recovered/Not Resolved]
  - Headache [Not Recovered/Not Resolved]
  - Fatigue [Recovered/Resolved]
  - Burning sensation [Recovered/Resolved]
  - Swelling face [Recovered/Resolved]
  - Hyperhidrosis [Not Recovered/Not Resolved]
  - Throat irritation [Unknown]
  - Asthenia [Not Recovered/Not Resolved]
  - Dizziness [Not Recovered/Not Resolved]

NARRATIVE: CASE EVENT DATE: 202102
